FAERS Safety Report 17756812 (Version 1)
Quarter: 2020Q2

REPORT INFORMATION
  Report Type: Spontaneous
  Country: JP (occurrence: JP)
  Receive Date: 20200507
  Receipt Date: 20200507
  Transmission Date: 20200714
  Serious: Yes (Hospitalization, Other)
  Sender: FDA-Public Use
  Company Number: JP-009507513-2005JPN000867

PATIENT
  Age: 72 Year
  Sex: Female
  Weight: 42.8 kg

DRUGS (11)
  1. SILECE [Concomitant]
     Active Substance: FLUNITRAZEPAM
     Indication: BIPOLAR DISORDER
     Dosage: 2 MG, UNK
     Route: 048
     Dates: start: 200709
  2. DEPAS [Concomitant]
     Indication: BIPOLAR DISORDER
     Dosage: 1 MG, UNK
     Route: 048
     Dates: start: 20091128
  3. METHYCOBAL [Concomitant]
     Active Substance: METHYLCOBALAMIN
     Indication: NEUROPATHY PERIPHERAL
     Dosage: 100 UG, UNK
     Route: 048
     Dates: start: 200901, end: 20091229
  4. REMERON [Suspect]
     Active Substance: MIRTAZAPINE
     Indication: BIPOLAR DISORDER
     Dosage: 15 MG, QD
     Route: 048
     Dates: start: 20091124, end: 20101229
  5. LIMAS [Concomitant]
     Active Substance: LITHIUM CARBONATE
     Indication: BIPOLAR DISORDER
     Dosage: 400 MG, UNK
     Route: 048
     Dates: start: 200802
  6. LORMETAZEPAM [Concomitant]
     Active Substance: LORMETAZEPAM
     Dosage: UNK
  7. TEGRETOL [Suspect]
     Active Substance: CARBAMAZEPINE
     Indication: BIPOLAR DISORDER
     Dosage: 400 MG, QD
     Route: 048
     Dates: start: 20091106, end: 20091229
  8. MAGMITT [Concomitant]
     Active Substance: MAGNESIUM OXIDE
     Indication: CONSTIPATION
     Dosage: 1000 MG, UNK
     Route: 048
     Dates: start: 200901
  9. MYSLEE [Concomitant]
     Active Substance: ZOLPIDEM TARTRATE
     Indication: BIPOLAR DISORDER
     Dosage: 10 MG, UNK
     Route: 048
     Dates: start: 200709
  10. DESYREL [Concomitant]
     Active Substance: TRAZODONE HYDROCHLORIDE
     Indication: BIPOLAR DISORDER
     Dosage: 50 MG, UNK
     Route: 048
     Dates: start: 200709
  11. PURSENNID (SENNA) [Concomitant]
     Dosage: UNK

REACTIONS (8)
  - Erythema multiforme [Recovered/Resolved]
  - Drug eruption [Recovered/Resolved]
  - Oral mucosa erosion [Recovered/Resolved]
  - Neuropathy peripheral [Unknown]
  - Pain [Recovered/Resolved]
  - Lymphocyte stimulation test positive [Unknown]
  - Papule [Recovered/Resolved]
  - Constipation [Unknown]

NARRATIVE: CASE EVENT DATE: 20091226
